FAERS Safety Report 5174350-8 (Version None)
Quarter: 2006Q4

REPORT INFORMATION
  Report Type: 
  Country: None (occurrence: None)
  Receive Date: 20061214
  Receipt Date: 20061206
  Transmission Date: 20070319
  Serious: Yes (Death)
  Sender: FDA-Public Use
  Company Number: US-ELI_LILLY_AND_COMPANY-US200612001091

PATIENT
  Age: 41 Year
  Sex: Female

DRUGS (9)
  1. ZYPREXA [Suspect]
     Dates: start: 20061006
  2. ZYPREXA [Suspect]
     Dosage: 20 MG, UNK
  3. ZYPREXA [Suspect]
     Dosage: 40 MG, UNK
  4. ABILIFY [Concomitant]
     Indication: BIPOLAR DISORDER
     Dosage: UNK, UNK
     Dates: end: 20061020
  5. LITHIUM CARBONATE [Concomitant]
     Dosage: 900 MG, UNK
  6. REQUIP [Concomitant]
     Dosage: 0.5 MG, DAILY (1/D)
  7. ZOLOFT [Concomitant]
     Dosage: 150 MG, DAILY (1/D)
  8. INFLUENZA VACCINE [Concomitant]
  9. CLONAZEPAM [Concomitant]
     Dosage: 0.4 MG, DAILY (1/D)

REACTIONS (3)
  - DEATH [None]
  - MALAISE [None]
  - PRESCRIBED OVERDOSE [None]
